FAERS Safety Report 8036743-0 (Version None)
Quarter: 2012Q1

REPORT INFORMATION
  Report Type: 
  Country: None (occurrence: None)
  Receive Date: 20120111
  Receipt Date: 20120106
  Transmission Date: 20120608
  Serious: Yes (Other)
  Sender: FDA-Public Use
  Company Number: US-ROCHE-1028595

PATIENT
  Sex: Female

DRUGS (2)
  1. COPEGUS [Suspect]
     Indication: HEPATITIS C
     Route: 048
     Dates: start: 20111114
  2. PEGASYS [Suspect]
     Indication: HEPATITIS C
     Route: 058
     Dates: start: 20111114

REACTIONS (8)
  - CHEST DISCOMFORT [None]
  - FLUID INTAKE REDUCED [None]
  - NAUSEA [None]
  - WEIGHT INCREASED [None]
  - VOMITING [None]
  - FOOD INTOLERANCE [None]
  - ABDOMINAL DISTENSION [None]
  - DYSGEUSIA [None]
